FAERS Safety Report 4916660-2 (Version None)
Quarter: 2006Q1

REPORT INFORMATION
  Report Type: 
  Country: None (occurrence: None)
  Receive Date: 20060216
  Receipt Date: 20060216
  Transmission Date: 20060701
  Serious: Yes (Other)
  Sender: FDA-Public Use
  Company Number: None

PATIENT
  Age: 75 Year
  Sex: Male
  Weight: 92.5 kg

DRUGS (4)
  1. CEFPODOXIME PROXETIL [Suspect]
  2. ALBUTEROL SULFATE AND IPRATROPIUM BROMIDE [Concomitant]
  3. FLUTICAS 250 /SALMETEROL INH [Concomitant]
  4. SIMVASTATIN [Concomitant]

REACTIONS (1)
  - RASH [None]
